FAERS Safety Report 12217679 (Version 1)
Quarter: 2016Q1

REPORT INFORMATION
  Report Type: Spontaneous
  Country: JP (occurrence: JP)
  Receive Date: 20160329
  Receipt Date: 20160329
  Transmission Date: 20160526
  Serious: Yes (Death, Hospitalization, Disabling)
  Sender: FDA-Public Use
  Company Number: JP-CLINIGEN GROUP PLC/ CLINIGEN HEALTHCARE LTD-E2B_00004753

PATIENT
  Age: 57 Year
  Sex: Male
  Weight: 54 kg

DRUGS (10)
  1. FOSCAVIR [Suspect]
     Active Substance: FOSCARNET SODIUM
     Indication: ENCEPHALITIS CYTOMEGALOVIRUS
     Route: 042
     Dates: start: 20150213, end: 20150216
  2. FOSCAVIR [Suspect]
     Active Substance: FOSCARNET SODIUM
     Route: 042
     Dates: start: 20150217, end: 20150218
  3. SOLDEM 1 [Concomitant]
     Active Substance: DEXTROSE\SODIUM CHLORIDE\SODIUM LACTATE
     Indication: PRODUCT USED FOR UNKNOWN INDICATION
     Route: 042
     Dates: start: 20150213, end: 20150216
  4. RETROVIR [Concomitant]
     Active Substance: ZIDOVUDINE
     Indication: HIV INFECTION
     Dosage: 200MG TWICE DAILY
     Dates: start: 20150213, end: 20150309
  5. TIVICAY [Concomitant]
     Active Substance: DOLUTEGRAVIR SODIUM
     Indication: HIV INFECTION
     Dosage: 50 MG ONCE DAILY ORALLY
     Route: 048
     Dates: start: 20150206, end: 20150304
  6. DENOSINE [Concomitant]
     Active Substance: GANCICLOVIR
     Indication: CYTOMEGALOVIRUS INFECTION
     Route: 042
     Dates: start: 20150206, end: 20150212
  7. DENOSINE [Concomitant]
     Active Substance: GANCICLOVIR
     Route: 042
     Dates: start: 20150213, end: 20150216
  8. DENOSINE [Concomitant]
     Active Substance: GANCICLOVIR
     Route: 042
     Dates: start: 20150217, end: 20150309
  9. EPZICOM [Concomitant]
     Active Substance: ABACAVIR SULFATE\LAMIVUDINE
     Indication: HIV INFECTION
     Dosage: 1 TABLET ONCE DAILY ORALLY
     Route: 048
     Dates: start: 20150206, end: 20150304
  10. PHYSIOLOGICAL SALINE [Concomitant]
     Indication: PRODUCT USED FOR UNKNOWN INDICATION
     Route: 042
     Dates: start: 20150217, end: 20150222

REACTIONS (6)
  - Renal impairment [Not Recovered/Not Resolved]
  - Liver disorder [Unknown]
  - Hyponatraemia [Unknown]
  - Sepsis [Fatal]
  - Intestinal ischaemia [Fatal]
  - Renal disorder [Unknown]

NARRATIVE: CASE EVENT DATE: 20150218
